FAERS Safety Report 23075886 (Version 3)
Quarter: 2023Q4

REPORT INFORMATION
  Report Type: Report from Study
  Country: US (occurrence: US)
  Receive Date: 20231017
  Receipt Date: 20231205
  Transmission Date: 20240109
  Serious: Yes (Hospitalization)
  Sender: FDA-Public Use
  Company Number: US-BAUSCH-BL-2023-015428

PATIENT
  Age: 74 Year
  Sex: Male

DRUGS (1)
  1. XIFAXAN [Suspect]
     Active Substance: RIFAXIMIN
     Indication: Hepatic encephalopathy
     Dosage: DUARATION: 7 MONTHS
     Route: 048
     Dates: start: 202305

REACTIONS (9)
  - Pneumonia [Unknown]
  - Intervertebral disc injury [Unknown]
  - Dysarthria [Unknown]
  - Ammonia increased [Unknown]
  - Fall [Unknown]
  - Confusional state [Unknown]
  - Disorientation [Unknown]
  - Back pain [Unknown]
  - Intentional product use issue [Unknown]

NARRATIVE: CASE EVENT DATE: 20230101
